FAERS Safety Report 12201546 (Version 1)
Quarter: 2016Q1

REPORT INFORMATION
  Report Type: Spontaneous
  Country: US (occurrence: US)
  Receive Date: 20160322
  Receipt Date: 20160322
  Transmission Date: 20160526
  Serious: No
  Sender: FDA-Public Use
  Company Number: US-SA-2015SA174565

PATIENT
  Sex: Male

DRUGS (2)
  1. NASACORT ALLERGY 24HR [Suspect]
     Active Substance: TRIAMCINOLONE ACETONIDE
     Indication: ALLERGIC SINUSITIS
     Dosage: START DATE: USING SINCE 3 YEARS?DOSE: ONE SPRAY IN EACH NOSTRIL, DAILY
     Route: 045
  2. NASACORT ALLERGY 24HR [Suspect]
     Active Substance: TRIAMCINOLONE ACETONIDE
     Indication: BRONCHITIS
     Dosage: START DATE: USING SINCE 3 YEARS?DOSE: ONE SPRAY IN EACH NOSTRIL, DAILY
     Route: 045

REACTIONS (1)
  - Drug ineffective [Unknown]
